FAERS Safety Report 19735560 (Version 2)
Quarter: 2022Q1

REPORT INFORMATION
  Report Type: Report from Study
  Country: US (occurrence: US)
  Receive Date: 20210823
  Receipt Date: 20220324
  Transmission Date: 20220423
  Serious: No
  Sender: FDA-Public Use
  Company Number: US-TAKEDA-2021TUS051455

PATIENT
  Sex: Female
  Weight: 127 kg

DRUGS (1)
  1. PONATINIB [Suspect]
     Active Substance: PONATINIB
     Indication: Chronic myeloid leukaemia
     Dosage: 15 MILLIGRAM, QD
     Route: 065
     Dates: end: 2022

REACTIONS (4)
  - Flatulence [Unknown]
  - Abdominal pain upper [Unknown]
  - White blood cell count increased [Unknown]
  - Abdominal distension [Unknown]
